FAERS Safety Report 11388960 (Version 7)
Quarter: 2020Q4

REPORT INFORMATION
  Report Type: Spontaneous
  Country: US (occurrence: US)
  Receive Date: 20150817
  Receipt Date: 20201118
  Transmission Date: 20210113
  Serious: Yes (Hospitalization, Other)
  Sender: FDA-Public Use
  Company Number: US-PFIZER INC-2015273572

PATIENT
  Age: 69 Year
  Sex: Female
  Weight: 73 kg

DRUGS (17)
  1. VITAMIN D3 [Concomitant]
     Active Substance: CHOLECALCIFEROL
     Indication: BONE DISORDER
     Dosage: 1000 IU, DAILY
     Route: 048
  2. VITAMIN E [Concomitant]
     Active Substance: .ALPHA.-TOCOPHEROL
     Indication: IMPAIRED HEALING
     Dosage: 400 IU, DAILY
     Route: 048
  3. CALCIUM [Concomitant]
     Active Substance: CALCIUM
     Indication: ARTHRITIS
     Dosage: 600 MG, 1X/DAY
     Route: 048
  4. VITAMIN B12 [Concomitant]
     Active Substance: CYANOCOBALAMIN
     Indication: ASTHENIA
     Dosage: 1000 ?G, DAILY
     Route: 048
     Dates: start: 201508
  5. HYDROXYZINE [Concomitant]
     Active Substance: HYDROXYZINE HYDROCHLORIDE
     Dosage: 25 MG, 1X/DAY (AT NIGHT)
     Route: 048
  6. ONE-A-DAY NOS [Concomitant]
     Active Substance: MINERALS\VITAMINS
     Dosage: 1 DF, DAILY AS NEEDED
     Route: 048
  7. LISINOPRIL HCTZ [Concomitant]
     Active Substance: HYDROCHLOROTHIAZIDE\LISINOPRIL
     Indication: BLOOD PRESSURE ABNORMAL
     Dosage: 1 DF, 1X/DAY (LISINOPRIL: 5 MG)/ (HYDROCHLOROTHIAZIDE: 12.5MG)
     Route: 048
     Dates: start: 201611
  8. LISINOPRIL HCTZ [Concomitant]
     Active Substance: HYDROCHLOROTHIAZIDE\LISINOPRIL
     Indication: POLYURIA
     Dosage: 1 DF, 1X/DAY (LISINOPRIL: 10 MG)/ (HYDROCHLOROTHIAZIDE: 12.5MG)
     Route: 048
  9. CALCIUM [Concomitant]
     Active Substance: CALCIUM
     Indication: BONE DISORDER
  10. VITAMIN C [Concomitant]
     Active Substance: ASCORBIC ACID
     Dosage: 500 MG, DAILY
     Route: 048
     Dates: start: 2013
  11. FAMOTIDINE. [Concomitant]
     Active Substance: FAMOTIDINE
     Indication: GASTROOESOPHAGEAL REFLUX DISEASE
     Dosage: UNK
     Dates: start: 2012
  12. XELJANZ [Suspect]
     Active Substance: TOFACITINIB CITRATE
     Dosage: 5 MG, 2X/DAY
     Route: 048
  13. ZYRTEC [Concomitant]
     Active Substance: CETIRIZINE HYDROCHLORIDE
     Indication: GASTROOESOPHAGEAL REFLUX DISEASE
     Dosage: UNK
     Dates: start: 2012
  14. XELJANZ [Suspect]
     Active Substance: TOFACITINIB CITRATE
     Indication: RHEUMATOID ARTHRITIS
     Dosage: 5MG TWICE DAILY (AT 5 AM AND 5 PM)
     Route: 048
  15. IPRATROPIUM BROMIDE AND ALBUTEROL SULFATE [Concomitant]
     Active Substance: ALBUTEROL SULFATE\IPRATROPIUM BROMIDE
     Dosage: AS NEEDED (IPRATROPIUM BROMIDE 0.5MG AND ALBUTEROL SULFATE 3MG FOR NEBULIZER)
     Route: 045
  16. XELJANZ [Suspect]
     Active Substance: TOFACITINIB CITRATE
     Indication: OSTEOARTHRITIS
     Dosage: 5MG TWICE DAILY (AT 5 AM AND 5 PM)
     Route: 048
     Dates: start: 20140516
  17. HYDROXYZINE [Concomitant]
     Active Substance: HYDROXYZINE HYDROCHLORIDE
     Indication: LICHEN SCLEROSUS
     Dosage: 25 MG TABLET ONE TO TWO AT NIGHT
     Route: 048
     Dates: start: 2012

REACTIONS (11)
  - Cough [Not Recovered/Not Resolved]
  - Pain in extremity [Not Recovered/Not Resolved]
  - Throat irritation [Unknown]
  - Pain [Unknown]
  - Muscle tightness [Recovered/Resolved]
  - Hyperaesthesia [Recovered/Resolved]
  - Dysstasia [Recovered/Resolved]
  - Eye pain [Not Recovered/Not Resolved]
  - Nausea [Recovered/Resolved]
  - Angina pectoris [Recovered/Resolved]
  - Headache [Recovered/Resolved]
